FAERS Safety Report 25984440 (Version 1)
Quarter: 2025Q4

REPORT INFORMATION
  Report Type: Spontaneous
  Country: US (occurrence: None)
  Receive Date: 20251030
  Receipt Date: 20251030
  Transmission Date: 20260118
  Serious: Yes (Other)
  Sender: FDA-CTU
  Company Number: None

PATIENT
  Age: 16 Year
  Sex: Female
  Weight: 48.6 kg

DRUGS (4)
  1. QELBREE [Suspect]
     Active Substance: VILOXAZINE HYDROCHLORIDE
     Indication: Attention deficit hyperactivity disorder
     Dosage: DAILY ORAL?
     Route: 048
     Dates: start: 20251018, end: 20251028
  2. Dexcom g6 [Concomitant]
  3. omnipod 5 [Concomitant]
  4. HUMALOG [Concomitant]
     Active Substance: INSULIN LISPRO

REACTIONS (7)
  - Withdrawal syndrome [None]
  - Migraine [None]
  - Sleep disorder [None]
  - Crying [None]
  - Vomiting [None]
  - Fatigue [None]
  - Drug ineffective [None]

NARRATIVE: CASE EVENT DATE: 20251030
